FAERS Safety Report 5929641-7 (Version None)
Quarter: 2008Q3

REPORT INFORMATION
  Report Type: 
  Country: None (occurrence: None)
  Receive Date: 20080929
  Receipt Date: 20080620
  Transmission Date: 20090109
  Serious: Yes (Death, Other)
  Sender: FDA-Public Use
  Company Number: PHEH2008US04026

PATIENT
  Age: 47 Year
  Sex: Male

DRUGS (1)
  1. TASIGNA [Suspect]
     Indication: CHRONIC MYELOID LEUKAEMIA
     Dosage: 400 MG, BID, ORAL
     Route: 048
     Dates: start: 20071226

REACTIONS (5)
  - BLAST CRISIS IN MYELOGENOUS LEUKAEMIA [None]
  - CARDIAC FAILURE [None]
  - CHRONIC MYELOID LEUKAEMIA [None]
  - EJECTION FRACTION DECREASED [None]
  - INFECTION [None]
